FAERS Safety Report 8331644-2 (Version None)
Quarter: 2012Q2

REPORT INFORMATION
  Report Type: 
  Country: None (occurrence: None)
  Receive Date: 20120502
  Receipt Date: 20111012
  Transmission Date: 20120825
  Serious: No
  Sender: FDA-Public Use
  Company Number: US-ASTRAZENECA-2011SE60803

PATIENT
  Age: 65 Year
  Sex: Female
  Weight: 98 kg

DRUGS (14)
  1. VITAMIN C [Concomitant]
     Indication: MEDICAL DIET
  2. BUDESONIDE [Suspect]
     Indication: COLITIS MICROSCOPIC
     Route: 048
     Dates: start: 20111005
  3. LOVASTATIN [Concomitant]
     Indication: BLOOD CHOLESTEROL ABNORMAL
  4. VITAMIN D [Concomitant]
     Indication: MEDICAL DIET
  5. CALCIUM [Concomitant]
     Indication: MEDICAL DIET
  6. CRANBERRY PILL [Concomitant]
     Indication: MEDICAL DIET
  7. LEVOXYL [Concomitant]
     Indication: HYPOTHYROIDISM
  8. ASPIRIN [Concomitant]
  9. TRIAMTERENE AND HYDROCHLOROTHIAZIDE [Concomitant]
     Indication: ARTHRITIS
  10. NEXIUM [Concomitant]
     Indication: GASTROOESOPHAGEAL REFLUX DISEASE
  11. CYCLOBENZAPRINE [Concomitant]
     Indication: MUSCLE SPASMS
  12. PROPRANOLOL [Concomitant]
     Indication: HEART RATE IRREGULAR
  13. LOSARTAN POTASSIUM [Concomitant]
     Indication: HYPERTENSION
  14. GLUCOSAMINE CHONDROITIN [Concomitant]
     Indication: ARTHRALGIA

REACTIONS (2)
  - FLUSHING [None]
  - OFF LABEL USE [None]
